FAERS Safety Report 5113262-2 (Version None)
Quarter: 2006Q3

REPORT INFORMATION
  Report Type: 
  Country: None (occurrence: None)
  Receive Date: 20060920
  Receipt Date: 20060906
  Transmission Date: 20061208
  Serious: Yes (Other)
  Sender: FDA-Public Use
  Company Number: 8018439

PATIENT
  Age: 11 Year
  Sex: Female
  Weight: 84 kg

DRUGS (4)
  1. KEPPRA [Suspect]
     Indication: CONVULSION
     Dosage: 500 MG/D/ PO
     Route: 048
     Dates: start: 20060802, end: 20060809
  2. KEPPRA [Suspect]
     Indication: CONVULSION
     Dosage: 500 MG 2/D PO
     Route: 048
     Dates: start: 20060810, end: 20060817
  3. ZARONTIN [Concomitant]
  4. KEPPRA [Suspect]
     Indication: CONVULSION
     Dosage: 1500 MG /D PO
     Route: 048
     Dates: start: 20060818

REACTIONS (8)
  - AGGRESSION [None]
  - ANGER [None]
  - CRYING [None]
  - DRUG INEFFECTIVE [None]
  - INSOMNIA [None]
  - PETIT MAL EPILEPSY [None]
  - SCREAMING [None]
  - SUICIDAL IDEATION [None]
